FAERS Safety Report 9498332 (Version 1)
Quarter: 2013Q3

REPORT INFORMATION
  Report Type: Spontaneous
  Country: CN (occurrence: CN)
  Receive Date: 20130904
  Receipt Date: 20130904
  Transmission Date: 20140515
  Serious: Yes (Hospitalization)
  Sender: FDA-Public Use
  Company Number: CN-PFIZER INC-2013249846

PATIENT
  Age: 49 Year
  Sex: Male
  Weight: 85 kg

DRUGS (3)
  1. ZYVOX [Suspect]
     Indication: INFECTION
     Dosage: 300 MG, 2X/DAY
     Route: 041
     Dates: start: 20120210, end: 20120212
  2. MOXIFLOXACIN [Concomitant]
     Dosage: UNK
     Dates: start: 20120210, end: 20120212
  3. CEFEPIME [Concomitant]
     Dosage: UNK
     Dates: start: 20120210, end: 20120212

REACTIONS (5)
  - Feeling abnormal [Recovered/Resolved]
  - Confusional state [Recovered/Resolved]
  - Aggression [Recovered/Resolved]
  - Refusal of treatment by patient [Recovered/Resolved]
  - Hypophagia [Recovered/Resolved]
